FAERS Safety Report 6211921-1 (Version None)
Quarter: 2009Q2

REPORT INFORMATION
  Report Type: 
  Country: None (occurrence: None)
  Receive Date: 20090529
  Receipt Date: 20090519
  Transmission Date: 20091009
  Serious: Yes (Hospitalization)
  Sender: FDA-Public Use
  Company Number: SPV1-2009-01002

PATIENT
  Sex: Male
  Weight: 127.5 kg

DRUGS (12)
  1. FOSRENOL [Suspect]
     Indication: BLOOD PHOSPHORUS INCREASED
     Dosage: 1000 MG, 3X/DAY: TID, ORAL
     Route: 048
     Dates: start: 20050101
  2. HUMULIN N [Concomitant]
  3. HUMULIN REGULAR (INSULIN HUMAN) [Concomitant]
  4. GLUCOTROL XL [Concomitant]
  5. ZOLOFT [Concomitant]
  6. PROMETHAZINE [Concomitant]
  7. NEURONTIN [Concomitant]
  8. LIPITOR [Concomitant]
  9. ACCUPRIL [Concomitant]
  10. LORATAB (LORATADINE) [Concomitant]
  11. DURAGESIC /00070401/ (ORPHENADRINE CITRATE, PARACETAMOL) [Concomitant]
  12. ASPIRIN [Concomitant]

REACTIONS (6)
  - CARDIAC DISORDER [None]
  - CARDIAC INFECTION [None]
  - FLUID OVERLOAD [None]
  - HYPOTENSION [None]
  - LOSS OF CONSCIOUSNESS [None]
  - MYOCARDIAL INFARCTION [None]
